FAERS Safety Report 6847395-7 (Version None)
Quarter: 2010Q3

REPORT INFORMATION
  Report Type: 
  Country: None (occurrence: None)
  Receive Date: 20100713
  Receipt Date: 20100706
  Transmission Date: 20110219
  Serious: Yes (Hospitalization, Other)
  Sender: FDA-Public Use
  Company Number: 2010SP034378

PATIENT
  Age: 38 Year
  Sex: Female
  Weight: 56 kg

DRUGS (7)
  1. REMERON [Suspect]
     Indication: DEPRESSION
     Dosage: 15 MG;QD;PO
     Dates: start: 20100527, end: 20100609
  2. ZOLOFT [Concomitant]
  3. SILECE [Concomitant]
  4. MYSLEE [Concomitant]
  5. LORAZEPAM [Concomitant]
  6. GASMOTIN [Concomitant]
  7. TETUCUR [Concomitant]

REACTIONS (5)
  - CONVULSION [None]
  - DIZZINESS [None]
  - HEAD INJURY [None]
  - OPEN WOUND [None]
  - SYNCOPE [None]
